FAERS Safety Report 19493575 (Version 1)
Quarter: 2021Q3

REPORT INFORMATION
  Report Type: Report from Study
  Country: CA (occurrence: CA)
  Receive Date: 20210705
  Receipt Date: 20210705
  Transmission Date: 20211014
  Serious: Yes (Other)
  Sender: FDA-Public Use
  Company Number: CA-PFIZER INC-2021747771

PATIENT
  Sex: Male

DRUGS (17)
  1. ACETYLSALICYLIC ACID [Concomitant]
     Active Substance: ASPIRIN
     Route: 065
  2. CANNABIS SATIVA [Concomitant]
     Active Substance: CANNABIS SATIVA FLOWERING TOP
  3. FOLIC ACID. [Concomitant]
     Active Substance: FOLIC ACID
  4. LISINOPRIL. [Concomitant]
     Active Substance: LISINOPRIL
  5. NIFEDIPINE. [Concomitant]
     Active Substance: NIFEDIPINE
  6. ROSUVASTATIN CALCIUM. [Concomitant]
     Active Substance: ROSUVASTATIN CALCIUM
  7. HYDROCHLOROTHIAZIDE. [Concomitant]
     Active Substance: HYDROCHLOROTHIAZIDE
  8. CLOPIDOGREL BISULFATE. [Concomitant]
     Active Substance: CLOPIDOGREL BISULFATE
  9. TYLENOL ARTHRITIS PAIN [Concomitant]
     Active Substance: ACETAMINOPHEN
  10. ACETAMINOPHEN. [Concomitant]
     Active Substance: ACETAMINOPHEN
     Indication: PREMEDICATION
     Dosage: UNK
     Route: 048
  11. METHOTREXATE. [Concomitant]
     Active Substance: METHOTREXATE
     Route: 048
  12. NIACIN. [Concomitant]
     Active Substance: NIACIN
  13. ATENOLOL. [Concomitant]
     Active Substance: ATENOLOL
  14. RITUXIMAB. [Suspect]
     Active Substance: RITUXIMAB
     Indication: RHEUMATOID ARTHRITIS
     Dosage: 1000 MG 1 EVERY 15 DAYS
     Route: 042
  15. DIPHENHYDRAMINE. [Concomitant]
     Active Substance: DIPHENHYDRAMINE
     Indication: PREMEDICATION
     Route: 048
  16. METHYLPREDNISOLONE. [Concomitant]
     Active Substance: METHYLPREDNISOLONE
     Indication: PREMEDICATION
     Route: 042
  17. POTASSIUM [Concomitant]
     Active Substance: POTASSIUM

REACTIONS (1)
  - Arthropathy [Unknown]
